FAERS Safety Report 9260837 (Version 1)
Quarter: 2013Q2

REPORT INFORMATION
  Report Type: Spontaneous
  Country: US (occurrence: US)
  Receive Date: 20130429
  Receipt Date: 20130429
  Transmission Date: 20140414
  Serious: No
  Sender: FDA-Public Use
  Company Number: US-AMGEN-USASP2013010790

PATIENT
  Age: 76 Year
  Sex: Male

DRUGS (1)
  1. VECTIBIX [Suspect]
     Indication: COLORECTAL CANCER
     Dosage: 500 MG, 2 TIMES/WK
     Dates: start: 201210, end: 20121217

REACTIONS (10)
  - Abdominal discomfort [Unknown]
  - Sunburn [Unknown]
  - Scratch [Unknown]
  - Tumour marker increased [Unknown]
  - Asthenia [Unknown]
  - Cough [Unknown]
  - Fatigue [Unknown]
  - Rash pruritic [Recovering/Resolving]
  - Acne [Recovering/Resolving]
  - Diarrhoea [Unknown]
